FAERS Safety Report 9393654 (Version 1)
Quarter: 2013Q3

REPORT INFORMATION
  Report Type: Spontaneous
  Country: FR (occurrence: FR)
  Receive Date: 20130710
  Receipt Date: 20130710
  Transmission Date: 20140515
  Serious: Yes (Hospitalization)
  Sender: FDA-Public Use
  Company Number: FR-GLAXOSMITHKLINE-B0904991A

PATIENT
  Age: 57 Year
  Sex: Female

DRUGS (5)
  1. REVOLADE [Suspect]
     Indication: IMMUNE THROMBOCYTOPENIC PURPURA
     Dosage: 50MG PER DAY
     Route: 048
     Dates: start: 200906
  2. PLAQUENIL [Concomitant]
  3. CORTANCYL [Concomitant]
  4. FOSAMAX [Concomitant]
  5. CALCIDOSE VITAMIN D [Concomitant]
     Route: 048

REACTIONS (4)
  - Myocardial infarction [Recovered/Resolved with Sequelae]
  - Ischaemic cardiomyopathy [Not Recovered/Not Resolved]
  - Ejection fraction decreased [Not Recovered/Not Resolved]
  - General physical health deterioration [Unknown]
